FAERS Safety Report 19819410 (Version 6)
Quarter: 2023Q1

REPORT INFORMATION
  Report Type: Report from Study
  Country: DE (occurrence: None)
  Receive Date: 20210913
  Receipt Date: 20230330
  Transmission Date: 20230417
  Serious: Yes (Hospitalization)
  Sender: FDA-Public Use
  Company Number: DE-ROCHE-2906702

PATIENT
  Age: 77 Year
  Sex: Female
  Weight: 52 kg

DRUGS (13)
  1. ATEZOLIZUMAB [Suspect]
     Active Substance: ATEZOLIZUMAB
     Indication: Pancreatic carcinoma metastatic
     Dosage: ON 02/AUG/2021, SHE RECEIVED MOST RECENT DOSE OF ATEZOLIZUMAB (1680 MG) PRIOR TO ADVERSE EVENT ONSET
     Route: 041
     Dates: start: 20210412
  2. TOCILIZUMAB [Suspect]
     Active Substance: TOCILIZUMAB
     Indication: Pancreatic carcinoma metastatic
     Dosage: ON 02/AUG/2021, THE PATIENT RECEIVED MOST RECENT DOSE OF TOCILIZUMAB (226 MG) PRIOR TO ADVERSE EVENT
     Route: 042
     Dates: start: 20210412
  3. GEMCITABINE [Suspect]
     Active Substance: GEMCITABINE
     Indication: Pancreatic carcinoma metastatic
     Dosage: ON 09/AUG/2021, THE PATIENT RECEIVED MOST RECENT DOSE OF GEMCITABINE (1290 MG) PRIOR TO ADVERSE EVEN
     Route: 042
     Dates: start: 20210412
  4. PACLITAXEL [Suspect]
     Active Substance: PACLITAXEL
     Indication: Pancreatic carcinoma metastatic
     Dosage: ON 09/AUG/2021, SHE RECEIVED MOST RECENT DOSE OF NAB-PACLITAXEL (159 MG) PRIOR TO ADVERSE EVENT ONSE
     Route: 042
     Dates: start: 20210412
  5. PANTOPRAZOLE [Concomitant]
     Active Substance: PANTOPRAZOLE
     Indication: Prophylaxis
     Route: 048
  6. MOVICOL [Concomitant]
     Active Substance: POLYETHYLENE GLYCOL 3350\POTASSIUM CHLORIDE\SODIUM BICARBONATE\SODIUM CHLORIDE
     Indication: Constipation
     Route: 048
     Dates: start: 20210419
  7. METAMIZOLE [Concomitant]
     Active Substance: METAMIZOLE
     Indication: Pain
     Route: 048
     Dates: start: 20210419
  8. ALIZAPRIDE HYDROCHLORIDE [Concomitant]
     Active Substance: ALIZAPRIDE HYDROCHLORIDE
     Indication: Prophylaxis of nausea and vomiting
     Route: 048
     Dates: start: 20210419
  9. MOMETASONE [Concomitant]
     Active Substance: MOMETASONE
     Indication: Rash
     Dates: start: 20210426
  10. NEUPOGEN [Concomitant]
     Active Substance: FILGRASTIM
     Indication: Anaemia
     Route: 058
     Dates: start: 20210518
  11. IRINOTECAN [Concomitant]
     Active Substance: IRINOTECAN
     Indication: Neoplasm malignant
     Dates: start: 20210915, end: 20211007
  12. LEUCOVORIN [Concomitant]
     Active Substance: LEUCOVORIN
     Indication: Neoplasm malignant
     Dates: start: 20210915, end: 20211007
  13. FLUOROURACIL [Concomitant]
     Active Substance: FLUOROURACIL
     Indication: Neoplasm malignant
     Dates: start: 20210915, end: 20211007

REACTIONS (1)
  - Pneumonitis [Not Recovered/Not Resolved]

NARRATIVE: CASE EVENT DATE: 20210906
